FAERS Safety Report 10974996 (Version 4)
Quarter: 2018Q1

REPORT INFORMATION
  Report Type: Spontaneous
  Country: None (occurrence: US)
  Receive Date: 20150401
  Receipt Date: 20180315
  Transmission Date: 20180508
  Serious: Yes (Death, Hospitalization, Disabling, Other)
  Sender: FDA-Public Use
  Company Number: US-ENDO PHARMACEUTICALS INC.-2015-000248

PATIENT
  Age: 44 Year
  Sex: Male
  Weight: 99.77 kg

DRUGS (4)
  1. DELATESTRYL [Suspect]
     Active Substance: TESTOSTERONE ENANTHATE
     Indication: ANDROGEN REPLACEMENT THERAPY
     Dosage: UNK UNKNOWN, UNKNOWN
     Route: 030
     Dates: start: 20100622, end: 20110707
  2. DELATESTRYL [Suspect]
     Active Substance: TESTOSTERONE ENANTHATE
     Dosage: UNK UNKNOWN, UNKNOWN
     Route: 030
     Dates: start: 19950920, end: 20070701
  3. TESTOSTERONE. [Suspect]
     Active Substance: TESTOSTERONE
     Indication: ANDROGEN REPLACEMENT THERAPY
     Dosage: UNK UNKNOWN, UNKNOWN
     Route: 065
     Dates: start: 20041004, end: 20130529
  4. TESTOSTERONE ENANTHATE. [Suspect]
     Active Substance: TESTOSTERONE ENANTHATE
     Indication: ANDROGEN REPLACEMENT THERAPY
     Dosage: 200 MG/ML, Q3W (INJECT 1.7 ML INTO MUSCLE EVERY 3 WEEKS)
     Route: 030
     Dates: start: 199509, end: 201303

REACTIONS (6)
  - Cardiac failure congestive [Not Recovered/Not Resolved]
  - Polycythaemia [Not Recovered/Not Resolved]
  - Myocardial infarction [Unknown]
  - Hypertensive heart disease [Fatal]
  - Type 2 diabetes mellitus [Fatal]
  - Myocardial infarction [Not Recovered/Not Resolved]

NARRATIVE: CASE EVENT DATE: 19960430
